FAERS Safety Report 7937135-2 (Version None)
Quarter: 2011Q4

REPORT INFORMATION
  Report Type: 
  Country: None (occurrence: None)
  Receive Date: 20111123
  Receipt Date: 20111114
  Transmission Date: 20120403
  Serious: Yes (Hospitalization, Other)
  Sender: FDA-Public Use
  Company Number: US-BAYER-201039569NA

PATIENT
  Age: 40 Year
  Sex: Female
  Weight: 106.58 kg

DRUGS (6)
  1. DARVOCET [Concomitant]
     Indication: NECK PAIN
     Route: 048
  2. ZIAC [Concomitant]
     Indication: HYPERTENSION
     Dosage: 2.5 MG, QD
  3. IBUPROFEN [Concomitant]
     Indication: PAIN
     Dosage: 400 MG, PRN
  4. NATURE+#8217;S CODE MULTIVITAMIN [Concomitant]
     Indication: VITAMIN SUPPLEMENTATION
     Route: 048
  5. ASCORBIC ACID [Concomitant]
     Route: 048
  6. YASMIN [Suspect]
     Indication: CONTRACEPTION
     Route: 048
     Dates: start: 20080201, end: 20081001

REACTIONS (2)
  - THROMBOSIS [None]
  - DEEP VEIN THROMBOSIS [None]
